FAERS Safety Report 17774405 (Version 1)
Quarter: 2020Q2

REPORT INFORMATION
  Report Type: Report from Study
  Country: ES (occurrence: ES)
  Receive Date: 20200513
  Receipt Date: 20200513
  Transmission Date: 20200714
  Serious: Yes (Hospitalization)
  Sender: FDA-Public Use
  Company Number: ES-TEVA-2020-ES-1233514

PATIENT
  Age: 89 Year
  Sex: Male

DRUGS (5)
  1. ALDOCUMAR 1 MG COMPRIMIDOS, 40 COMPRIMIDOS [Interacting]
     Active Substance: WARFARIN SODIUM
     Indication: ATRIAL FIBRILLATION
     Route: 048
     Dates: start: 20150616, end: 20170630
  2. ENALAPRIL MALEATO (2142MA) [Concomitant]
     Active Substance: ENALAPRIL MALEATE
     Indication: HYPERTENSION
     Dosage: 20 MG
     Route: 048
     Dates: start: 20140502, end: 20170630
  3. BISOPROLOL (2328A) [Concomitant]
     Active Substance: BISOPROLOL
     Indication: ATRIAL FIBRILLATION
     Dosage: 1.25 MG
     Route: 048
     Dates: start: 20150616
  4. AMLODIPINO (2503A) [Concomitant]
     Active Substance: AMLODIPINE BESYLATE
     Indication: HYPERTENSION
     Dosage: 5 MG
     Route: 048
  5. SIMVASTATINA (1023A) [Suspect]
     Active Substance: SIMVASTATIN
     Indication: DYSLIPIDAEMIA
     Dosage: 10 MG
     Route: 048

REACTIONS (2)
  - Drug interaction [Unknown]
  - Subcapsular renal haematoma [Recovered/Resolved]

NARRATIVE: CASE EVENT DATE: 20170630
